FAERS Safety Report 18293079 (Version 2)
Quarter: 2020Q4

REPORT INFORMATION
  Report Type: Spontaneous
  Country: US (occurrence: US)
  Receive Date: 20200921
  Receipt Date: 20201216
  Transmission Date: 20210113
  Serious: No
  Sender: FDA-Public Use
  Company Number: US-CATALYST PHARMACEUTICALS, INC-2020CAT00423

PATIENT
  Sex: Male
  Weight: 97.51 kg

DRUGS (15)
  1. FIRDAPSE [Suspect]
     Active Substance: AMIFAMPRIDINE PHOSPHATE
     Indication: MYASTHENIC SYNDROME
     Dosage: TITRATING DAILY
     Dates: start: 202006, end: 202007
  2. PREDNISONE. [Suspect]
     Active Substance: PREDNISONE
     Dosage: 30 UNK, EVERY OTHER DAY (ALTERNATING DOSES)
  3. IVIG [Concomitant]
     Active Substance: HUMAN IMMUNOGLOBULIN G
  4. CLOPIDOGREL [Concomitant]
     Active Substance: CLOPIDOGREL BISULFATE
     Dosage: 75 MG, 1X/DAY
  5. TAMSULOSIN [Concomitant]
     Active Substance: TAMSULOSIN
     Dosage: 0.4 MG, 1X/DAY
  6. FIRDAPSE [Suspect]
     Active Substance: AMIFAMPRIDINE PHOSPHATE
     Dosage: 10 MG, 4X/DAY
     Dates: start: 20200710, end: 2020
  7. FIRDAPSE [Suspect]
     Active Substance: AMIFAMPRIDINE PHOSPHATE
     Dosage: 70 MG ^DAILY^
     Dates: start: 2020, end: 2020
  8. PREDNISONE. [Suspect]
     Active Substance: PREDNISONE
     Dosage: 40 UNK, EVERY OTHER DAY (ALTERNATING DOSES)
  9. PREDNISONE. [Suspect]
     Active Substance: PREDNISONE
     Dosage: 60 MG
  10. ATORVASTATIN [Concomitant]
     Active Substance: ATORVASTATIN
     Dosage: 40 MG, 1X/DAY
  11. FIRDAPSE [Suspect]
     Active Substance: AMIFAMPRIDINE PHOSPHATE
     Dosage: UNK, 4X/DAY 7AM, NOON, 6PM, AND BEDTIME: 10PM
     Route: 048
     Dates: start: 2020
  12. MESTINON [Concomitant]
     Active Substance: PYRIDOSTIGMINE BROMIDE
     Dosage: 60 MG, 3X/DAY
  13. FIRDAPSE [Suspect]
     Active Substance: AMIFAMPRIDINE PHOSPHATE
     Dosage: 50 MG ^DAILY^
     Dates: start: 2020, end: 202008
  14. AMLODIPINE BESYLATE. [Concomitant]
     Active Substance: AMLODIPINE BESYLATE
     Dosage: 5 MG, 1X/DAY
  15. SOLIRIS [Concomitant]
     Active Substance: ECULIZUMAB
     Indication: MYASTHENIA GRAVIS
     Dosage: UNK, 2X/MONTH (EVERY OTHER WEEK)

REACTIONS (5)
  - Weight increased [Not Recovered/Not Resolved]
  - Drug ineffective [Recovered/Resolved]
  - Night sweats [Recovered/Resolved]
  - Anaemia [Recovering/Resolving]
  - Hunger [Not Recovered/Not Resolved]

NARRATIVE: CASE EVENT DATE: 2020
